FAERS Safety Report 7700662-7 (Version None)
Quarter: 2011Q3

REPORT INFORMATION
  Report Type: 
  Country: None (occurrence: None)
  Receive Date: 20110822
  Receipt Date: 20110822
  Transmission Date: 20111222
  Serious: Yes (Death)
  Sender: FDA-Public Use
  Company Number: None

PATIENT
  Age: 64 Year
  Sex: Female
  Weight: 63.502 kg

DRUGS (1)
  1. MILK OF MAGNESIA TAB [Suspect]
     Indication: DYSPEPSIA
     Dosage: RECOMMENDED
     Route: 048
     Dates: start: 20050326, end: 20050326

REACTIONS (8)
  - DIALYSIS [None]
  - PUPILLARY REFLEX IMPAIRED [None]
  - TREATMENT FAILURE [None]
  - EYE DISORDER [None]
  - TRANSIENT ISCHAEMIC ATTACK [None]
  - MULTI-ORGAN FAILURE [None]
  - RENAL FAILURE ACUTE [None]
  - HALLUCINATION [None]
